FAERS Safety Report 7269287-4 (Version None)
Quarter: 2011Q1

REPORT INFORMATION
  Report Type: 
  Country: None (occurrence: None)
  Receive Date: 20110202
  Receipt Date: 20110119
  Transmission Date: 20110831
  Serious: Yes (Life-Threatening, Hospitalization, Other)
  Sender: FDA-Public Use
  Company Number: US-ELI_LILLY_AND_COMPANY-US200908006079

PATIENT
  Sex: Female

DRUGS (25)
  1. CITRICAL [Concomitant]
  2. LEVOTHYROXINE SODIUM [Concomitant]
  3. ASPIRIN [Concomitant]
  4. VIT D [Concomitant]
  5. EXFORGE [Concomitant]
  6. NAMENDA [Concomitant]
  7. KLONOPIN [Concomitant]
     Dosage: UNK, AS NEEDED
  8. BYSTOLIC [Concomitant]
  9. PROVIGIL [Concomitant]
  10. LORTAB [Concomitant]
     Indication: PAIN
     Dosage: UNK, AS NEEDED
  11. FORTEO [Suspect]
     Indication: OSTEOPOROSIS
     Dosage: 20 MG, DAILY (1/D)
  12. ADVAIR [Concomitant]
  13. EFFEXOR [Concomitant]
  14. IRON [Concomitant]
  15. OXYTROL [Concomitant]
  16. THEREVAC [Concomitant]
  17. AMBIEN [Concomitant]
     Dosage: UNK, AT NIGHT AS NEEDED
  18. DEPAKOTE [Concomitant]
  19. UROCIT-K [Concomitant]
  20. ACIPHEX [Concomitant]
  21. ALTACE [Concomitant]
  22. CELEBREX [Concomitant]
  23. EXELON [Concomitant]
  24. NEURONTIN [Concomitant]
  25. ALBUTEROL [Concomitant]
     Dosage: UNK, AS NEEDED

REACTIONS (18)
  - RASH [None]
  - EXOSTOSIS [None]
  - STREPTOCOCCAL INFECTION [None]
  - PAIN IN EXTREMITY [None]
  - MALAISE [None]
  - LOSS OF CONSCIOUSNESS [None]
  - STAPHYLOCOCCAL INFECTION [None]
  - BLOOD PRESSURE DECREASED [None]
  - MASS [None]
  - RENAL IMPAIRMENT [None]
  - OEDEMA PERIPHERAL [None]
  - MECHANICAL VENTILATION [None]
  - LUNG DISORDER [None]
  - HERPES ZOSTER [None]
  - CELLULITIS [None]
  - LOCALISED INFECTION [None]
  - ANXIETY [None]
  - MUSCULAR WEAKNESS [None]
